FAERS Safety Report 9778086 (Version 1)
Quarter: 2013Q4

REPORT INFORMATION
  Report Type: Report from Study
  Country: CN (occurrence: CN)
  Receive Date: 20131223
  Receipt Date: 20131223
  Transmission Date: 20140711
  Serious: Yes (Other)
  Sender: FDA-Public Use
  Company Number: CN-ROCHE-1324159

PATIENT
  Sex: 0

DRUGS (2)
  1. ALTEPLASE [Suspect]
     Indication: ISCHAEMIC STROKE
     Dosage: DAILY DOSE: UP TO 0.3 MG/KG
     Route: 013
  2. HEPARIN [Suspect]
     Indication: ISCHAEMIC STROKE
     Dosage: 2000 TO 3000 UNITS ACCORDING TO BODY WEIGHT (NR,BOLUS)
     Route: 042

REACTIONS (2)
  - Haemorrhagic transformation stroke [Unknown]
  - Intracranial pressure increased [Unknown]
